FAERS Safety Report 16491147 (Version 1)
Quarter: 2019Q3

REPORT INFORMATION
  Report Type: Spontaneous
  Country: US (occurrence: US)
  Receive Date: 20190627
  Receipt Date: 20190627
  Transmission Date: 20191004
  Serious: Yes (Other)
  Sender: FDA-Public Use
  Company Number: None

PATIENT
  Age: 14 Year
  Sex: Male
  Weight: 67.5 kg

DRUGS (1)
  1. OPCON-A [Suspect]
     Active Substance: NAPHAZOLINE HYDROCHLORIDE\PHENIRAMINE MALEATE
     Indication: ALLERGY TO ANIMAL
     Dosage: ?          QUANTITY:2 DROP(S);?
     Route: 047

REACTIONS (1)
  - Pupil fixed [None]

NARRATIVE: CASE EVENT DATE: 20190627
